FAERS Safety Report 16458022 (Version 5)
Quarter: 2021Q1

REPORT INFORMATION
  Report Type: Spontaneous
  Country: US (occurrence: US)
  Receive Date: 20190620
  Receipt Date: 20210217
  Transmission Date: 20210419
  Serious: Yes (Other)
  Sender: FDA-Public Use
  Company Number: US-PFIZER INC-2019260895

PATIENT
  Age: 75 Year
  Sex: Female
  Weight: 85 kg

DRUGS (3)
  1. IBRANCE [Suspect]
     Active Substance: PALBOCICLIB
     Indication: BREAST CANCER METASTATIC
     Dosage: 100 MG, CYCLIC (100MG DAILYX21DAYS?OFFX7 DAYS)
     Route: 048
     Dates: start: 201711
  2. LETROZOLE. [Concomitant]
     Active Substance: LETROZOLE
     Dosage: UNK
     Dates: start: 201711
  3. IBRANCE [Suspect]
     Active Substance: PALBOCICLIB
     Dosage: 100 MG, CYCLIC (21 DAYS EVERY 28 DAYS )
     Route: 048
     Dates: start: 20200117

REACTIONS (5)
  - Pulmonary embolism [Recovered/Resolved]
  - White blood cell count decreased [Recovered/Resolved with Sequelae]
  - Deep vein thrombosis [Recovered/Resolved]
  - Anaphylactic reaction [Unknown]
  - Platelet count decreased [Recovered/Resolved with Sequelae]

NARRATIVE: CASE EVENT DATE: 2019
